FAERS Safety Report 9971269 (Version 1)
Quarter: 2014Q1

REPORT INFORMATION
  Report Type: Spontaneous
  Country: US (occurrence: US)
  Receive Date: 20140306
  Receipt Date: 20140306
  Transmission Date: 20141002
  Serious: No
  Sender: FDA-Public Use
  Company Number: US-ABBVIE-13P-163-1149815-00

PATIENT
  Age: 56 Year
  Sex: Female

DRUGS (1)
  1. HUMIRA [Suspect]
     Indication: CROHN^S DISEASE
     Route: 058
     Dates: start: 201308

REACTIONS (4)
  - Injury associated with device [Recovered/Resolved]
  - Device malfunction [Recovered/Resolved]
  - Device difficult to use [Recovered/Resolved]
  - Injection site haemorrhage [Recovered/Resolved]
